FAERS Safety Report 6717624-9 (Version None)
Quarter: 2010Q2

REPORT INFORMATION
  Report Type: 
  Country: None (occurrence: None)
  Receive Date: 20100510
  Receipt Date: 20100429
  Transmission Date: 20101027
  Serious: Yes (Other)
  Sender: FDA-Public Use
  Company Number: US-JNJCH-2010010638

PATIENT
  Age: 40 Year
  Sex: Female
  Weight: 59 kg

DRUGS (3)
  1. BENADRYL SEVERE ALLERGY + SINUS HEADACHE [Suspect]
     Indication: SINUS HEADACHE
     Dosage: TEXT:2 TABLETS WITHIN 12 HOURS
     Route: 048
     Dates: start: 20100428, end: 20100428
  2. PAROXETINE MESILATE [Concomitant]
     Indication: EATING DISORDER
     Dosage: TEXT:40MG ONCE A DAY
     Route: 065
  3. KLONOPIN [Concomitant]
     Indication: PANIC ATTACK
     Dosage: TEXT:.50MG A DAY
     Route: 065

REACTIONS (1)
  - PANIC ATTACK [None]
